FAERS Safety Report 5479006-X (Version None)
Quarter: 2007Q4

REPORT INFORMATION
  Report Type: 
  Country: None (occurrence: None)
  Receive Date: 20071006
  Receipt Date: 20070925
  Transmission Date: 20080405
  Serious: Yes (Other)
  Sender: FDA-Public Use
  Company Number: GB-PFIZER INC-2007080542

PATIENT
  Age: 26 Year
  Sex: Female

DRUGS (1)
  1. CHAMPIX [Suspect]
     Route: 048

REACTIONS (5)
  - INSOMNIA [None]
  - MIGRAINE [None]
  - NAUSEA [None]
  - SINUS DISORDER [None]
  - VOMITING [None]
